FAERS Safety Report 9471777 (Version 1)
Quarter: 2013Q3

REPORT INFORMATION
  Report Type: Spontaneous
  Country: JP (occurrence: JP)
  Receive Date: 20130822
  Receipt Date: 20130822
  Transmission Date: 20140515
  Serious: Yes (Other)
  Sender: FDA-Public Use
  Company Number: JP-GLAXOSMITHKLINE-B0916378A

PATIENT
  Sex: Male

DRUGS (3)
  1. AVOLVE [Suspect]
     Indication: POLLAKIURIA
     Route: 048
  2. HARNAL [Concomitant]
     Indication: POLLAKIURIA
     Route: 048
  3. PSYCHOTROPIC DRUGS [Concomitant]
     Route: 048

REACTIONS (4)
  - Urinary retention [Recovered/Resolved]
  - Nausea [Recovered/Resolved]
  - Urinary incontinence [Recovered/Resolved]
  - Middle insomnia [Recovered/Resolved]
